FAERS Safety Report 8512547 (Version 2)
Quarter: 2013Q1

REPORT INFORMATION
  Report Type: Spontaneous
  Country: US (occurrence: US)
  Receive Date: 20120413
  Receipt Date: 20130315
  Transmission Date: 20140127
  Serious: Yes (Other)
  Sender: FDA-Public Use
  Company Number: US-ASTRAZENECA-2011SE56229

PATIENT
  Age: 61 Year
  Sex: Female

DRUGS (4)
  1. NEXIUM [Suspect]
     Route: 048
  2. PULMICORT RESPULES [Suspect]
     Route: 055
  3. RHINOCORT AQUA [Suspect]
     Route: 045
  4. TOPROL XL [Suspect]
     Route: 048

REACTIONS (6)
  - Staphylococcal infection [Unknown]
  - Gastrooesophageal reflux disease [Unknown]
  - Hypophagia [Unknown]
  - Dyspepsia [Unknown]
  - Chest pain [Unknown]
  - Drug dose omission [Unknown]
